FAERS Safety Report 19047112 (Version 3)
Quarter: 2021Q4

REPORT INFORMATION
  Report Type: Spontaneous
  Country: JP (occurrence: JP)
  Receive Date: 20210323
  Receipt Date: 20211006
  Transmission Date: 20220303
  Serious: Yes (Life-Threatening, Other)
  Sender: FDA-Public Use
  Company Number: JP-GALDERMA-JP2021006347

PATIENT

DRUGS (6)
  1. ROZEX (METRONIDAZOLE) [Suspect]
     Active Substance: METRONIDAZOLE
     Indication: Squamous cell carcinoma of skin
     Dosage: 1 DOSAGE FORM
     Route: 061
     Dates: start: 20201214, end: 20201225
  2. Tazobactam/Piperacillin Hydrate [Concomitant]
     Indication: Product used for unknown indication
     Dosage: UNK
     Dates: start: 20201214
  3. MEROPENEM [Concomitant]
     Active Substance: MEROPENEM
     Indication: Product used for unknown indication
     Dosage: 1 UNK
     Dates: start: 20201218, end: 20210104
  4. AMINO ACIDS\DEXTROSE\ELECTROLYTES NOS\VITAMINS [Concomitant]
     Active Substance: AMINO ACIDS\DEXTROSE\ELECTROLYTES NOS\VITAMINS
     Indication: Product used for unknown indication
     Dosage: 1 UNK
     Dates: start: 20201217, end: 20201225
  5. ACETAMINOPHEN [Concomitant]
     Active Substance: ACETAMINOPHEN
     Indication: Product used for unknown indication
     Dosage: UNK
     Dates: start: 20201217, end: 20201217
  6. ACETAMINOPHEN [Concomitant]
     Active Substance: ACETAMINOPHEN
     Dosage: 1 DOSAGE FORM
     Dates: start: 20201222, end: 20201222

REACTIONS (3)
  - Pancreatitis acute [Recovering/Resolving]
  - Haemorrhage [Recovering/Resolving]
  - Anaemia [Unknown]

NARRATIVE: CASE EVENT DATE: 20201224
